FAERS Safety Report 6109465-0 (Version None)
Quarter: 2009Q1

REPORT INFORMATION
  Report Type: 
  Country: None (occurrence: None)
  Receive Date: 20090306
  Receipt Date: 20090306
  Transmission Date: 20090719
  Serious: Yes (Death)
  Sender: FDA-Public Use
  Company Number: None

PATIENT
  Sex: Male
  Weight: 79 kg

DRUGS (8)
  1. ETOPOSIDE [Suspect]
     Indication: GLIOBLASTOMA MULTIFORME
     Dosage: 100MG DAILY X 21 DAYS PO
     Route: 048
     Dates: start: 20090113, end: 20090202
  2. BEVACIZUMAB [Suspect]
     Indication: GLIOBLASTOMA MULTIFORME
     Dosage: 798MG Q 2 WEEKS IV
     Route: 042
     Dates: start: 20090113
  3. BEVACIZUMAB [Suspect]
     Indication: GLIOBLASTOMA MULTIFORME
     Dosage: 798MG Q 2 WEEKS IV
     Route: 042
     Dates: start: 20090127
  4. PRILOSEC [Concomitant]
  5. DILANTIN [Concomitant]
  6. DEXAMETHASONE [Concomitant]
  7. TYLENOL [Concomitant]
  8. MULTI-VITAMIN [Concomitant]

REACTIONS (3)
  - GLIOBLASTOMA MULTIFORME [None]
  - MALIGNANT NEOPLASM PROGRESSION [None]
  - TREATMENT FAILURE [None]
